FAERS Safety Report 12614285 (Version 7)
Quarter: 2017Q1

REPORT INFORMATION
  Report Type: Report from Study
  Country: US (occurrence: US)
  Receive Date: 20160802
  Receipt Date: 20170213
  Transmission Date: 20170428
  Serious: Yes (Hospitalization, Other)
  Sender: FDA-Public Use
  Company Number: US-JNJFOC-20160605095

PATIENT
  Age: 73 Year
  Sex: Female

DRUGS (25)
  1. HYDROCHLOROTHIAZIDE. [Concomitant]
     Active Substance: HYDROCHLOROTHIAZIDE
  2. ALLEGRA [Concomitant]
     Active Substance: FEXOFENADINE HYDROCHLORIDE
  3. CALCIUM [Concomitant]
     Active Substance: CALCIUM
  4. SYNTHROID [Concomitant]
     Active Substance: LEVOTHYROXINE SODIUM
  5. CALCIUM + VIT D [Concomitant]
     Active Substance: CALCIUM\VITAMIN D
  6. ANTIVERT [Concomitant]
     Active Substance: MECLIZINE HYDROCHLORIDE
  7. IMBRUVICA [Suspect]
     Active Substance: IBRUTINIB
     Indication: MANTLE CELL LYMPHOMA
     Route: 048
     Dates: start: 20160621
  8. FERROUS SULFATE. [Concomitant]
     Active Substance: FERROUS SULFATE
  9. VITAMIN D [Concomitant]
     Active Substance: CHOLECALCIFEROL
  10. TREANDA [Suspect]
     Active Substance: BENDAMUSTINE HYDROCHLORIDE
     Indication: PRODUCT USED FOR UNKNOWN INDICATION
     Route: 065
  11. ALLOPURINOL. [Concomitant]
     Active Substance: ALLOPURINOL
  12. IMBRUVICA [Suspect]
     Active Substance: IBRUTINIB
     Indication: MANTLE CELL LYMPHOMA
     Route: 048
     Dates: start: 201604
  13. RITUXAN [Suspect]
     Active Substance: RITUXIMAB
     Indication: PRODUCT USED FOR UNKNOWN INDICATION
     Route: 065
  14. TOPROL XL [Concomitant]
     Active Substance: METOPROLOL SUCCINATE
  15. SIMVASTATIN. [Concomitant]
     Active Substance: SIMVASTATIN
  16. POTASSIUM [Concomitant]
     Active Substance: POTASSIUM
  17. VITAMIN C [Concomitant]
     Active Substance: ASCORBIC ACID
  18. IMBRUVICA [Suspect]
     Active Substance: IBRUTINIB
     Indication: MANTLE CELL LYMPHOMA
     Route: 048
     Dates: start: 20160329
  19. GEMFIBROZIL. [Concomitant]
     Active Substance: GEMFIBROZIL
  20. IRON [Concomitant]
     Active Substance: IRON
  21. VITAMIN B NOS [Concomitant]
     Active Substance: VITAMIN B
  22. VITAMIN B12 [Concomitant]
     Active Substance: CYANOCOBALAMIN
  23. FISH OIL [Concomitant]
     Active Substance: FISH OIL
  24. ADVAIR HFA [Concomitant]
     Active Substance: FLUTICASONE PROPIONATE\SALMETEROL XINAFOATE
  25. MECLIZINE [Concomitant]
     Active Substance: MECLIZINE HYDROCHLORIDE

REACTIONS (12)
  - Cough [Recovered/Resolved]
  - Amylase abnormal [Unknown]
  - Productive cough [Recovering/Resolving]
  - Rhinorrhoea [Recovered/Resolved]
  - Hypoaesthesia [Recovered/Resolved]
  - Nasal dryness [Unknown]
  - Tumour lysis syndrome [Recovered/Resolved]
  - Haemoglobin decreased [Unknown]
  - Pancreatitis [Recovered/Resolved]
  - Lipase abnormal [Unknown]
  - Nasal ulcer [Recovered/Resolved]
  - Upper respiratory tract infection [Recovering/Resolving]

NARRATIVE: CASE EVENT DATE: 2016
